FAERS Safety Report 14834415 (Version 2)
Quarter: 2018Q3

REPORT INFORMATION
  Report Type: Spontaneous
  Country: JP (occurrence: JP)
  Receive Date: 20180501
  Receipt Date: 20180926
  Transmission Date: 20181010
  Serious: Yes (Death, Hospitalization, Other)
  Sender: FDA-Public Use
  Company Number: JP-PFIZER INC-2018174516

PATIENT
  Age: 55 Year
  Sex: Female

DRUGS (1)
  1. IBRANCE [Suspect]
     Active Substance: PALBOCICLIB
     Indication: BREAST CANCER RECURRENT
     Dosage: 75 MG, DAILY
     Route: 048
     Dates: start: 20180405, end: 20180419

REACTIONS (7)
  - Death [Fatal]
  - Condition aggravated [Unknown]
  - White blood cell count decreased [Recovering/Resolving]
  - Dyspnoea [Unknown]
  - Tumour associated fever [Recovered/Resolved]
  - Neutrophil count decreased [Recovering/Resolving]
  - Pleural effusion [Unknown]

NARRATIVE: CASE EVENT DATE: 20180419
